FAERS Safety Report 15855314 (Version 2)
Quarter: 2019Q1

REPORT INFORMATION
  Report Type: Spontaneous
  Country: CA (occurrence: CA)
  Receive Date: 20190122
  Receipt Date: 20190129
  Transmission Date: 20190417
  Serious: No
  Sender: FDA-Public Use
  Company Number: CA-PFIZER INC-2018135286

PATIENT
  Age: 59 Year
  Sex: Male

DRUGS (1)
  1. SUTENT [Suspect]
     Active Substance: SUNITINIB MALATE
     Indication: MEDULLARY THYROID CANCER
     Dosage: 37.5 MG, DAILY
     Route: 048

REACTIONS (1)
  - Drug effective for unapproved indication [Unknown]
